FAERS Safety Report 17572562 (Version 1)
Quarter: 2020Q3

REPORT INFORMATION
  Report Type: Spontaneous
  Country: US (occurrence: US)
  Receive Date: 20200320
  Receipt Date: 20200320
  Transmission Date: 20201104
  Serious: Yes (Hospitalization)
  Sender: FDA-Public Use
  Company Number: None

PATIENT
  Age: 48 Year
  Sex: Female
  Weight: 92.7 kg

DRUGS (2)
  1. TREMELIMUMAB. [Suspect]
     Active Substance: TREMELIMUMAB
     Dosage: ?          OTHER FREQUENCY:ONCE EVERY 4 WEEKS;?
     Route: 042
     Dates: start: 20200312, end: 20200312
  2. DURVALUMAB. [Suspect]
     Active Substance: DURVALUMAB
     Dosage: ?          OTHER FREQUENCY:ONCE EVERY 4 WEEKS;?
     Route: 042
     Dates: start: 20200312, end: 20200312

REACTIONS (1)
  - Vomiting [None]

NARRATIVE: CASE EVENT DATE: 20200320
